FAERS Safety Report 4687433-3 (Version None)
Quarter: 2005Q2

REPORT INFORMATION
  Report Type: 
  Country: None (occurrence: None)
  Receive Date: 20050609
  Receipt Date: 20050609
  Transmission Date: 20051028
  Serious: Yes (Hospitalization)
  Sender: FDA-Public Use
  Company Number: None

PATIENT
  Age: 71 Year
  Sex: Male

DRUGS (2)
  1. WARFARIN 5 MG DAILY [Suspect]
     Indication: DEEP VEIN THROMBOSIS
     Dosage: 5 MG DAILY ORAL
     Route: 048
     Dates: start: 19940919, end: 20050412
  2. CLOPIDOGREL 75 MG DAILY [Suspect]
     Indication: STENT PLACEMENT
     Dosage: 75 MG DAILY ORAL
     Route: 048
     Dates: start: 20050404, end: 20050608

REACTIONS (1)
  - GASTROINTESTINAL HAEMORRHAGE [None]
